FAERS Safety Report 9253215 (Version 1)
Quarter: 2013Q2

REPORT INFORMATION
  Report Type: Spontaneous
  Country: US (occurrence: US)
  Receive Date: 20130424
  Receipt Date: 20130424
  Transmission Date: 20140414
  Serious: No
  Sender: FDA-Public Use
  Company Number: US-ASTRAZENECA-2013SE24186

PATIENT
  Age: 63 Year
  Sex: Female
  Weight: 96.6 kg

DRUGS (13)
  1. NEXIUM [Suspect]
     Indication: GASTROOESOPHAGEAL REFLUX DISEASE
     Dosage: DAILY
     Route: 048
     Dates: start: 2012
  2. NEXIUM [Suspect]
     Indication: GASTROOESOPHAGEAL REFLUX DISEASE
     Route: 048
  3. VENLAFAXINE [Concomitant]
     Indication: DEPRESSION
     Route: 048
  4. CARBAMAZEPINE [Concomitant]
     Indication: CONVULSION
     Route: 048
     Dates: start: 2007
  5. ESTRADIOL [Concomitant]
     Indication: HORMONE THERAPY
     Route: 048
  6. ATENOLOL [Concomitant]
     Indication: HYPERTENSION
     Route: 048
     Dates: start: 2011
  7. BENZONATATE [Concomitant]
     Indication: COUGH
     Route: 048
  8. ZOLPIDEM [Concomitant]
     Indication: SLEEP DISORDER
     Route: 048
  9. LOSARTAN [Concomitant]
     Indication: HYPERTENSION
     Route: 048
     Dates: start: 2012
  10. ABILIFY [Concomitant]
     Indication: DEPRESSION
     Route: 048
     Dates: start: 201302
  11. PROVENTIL INHALER [Concomitant]
     Indication: ASTHMA
     Dosage: PRN
     Route: 048
  12. PRAVASTATIN [Concomitant]
     Indication: BLOOD CHOLESTEROL ABNORMAL
     Route: 048
     Dates: start: 201304
  13. ECOTRIN [Concomitant]
     Indication: TRANSIENT ISCHAEMIC ATTACK
     Route: 048
     Dates: start: 2006

REACTIONS (9)
  - Regurgitation [Unknown]
  - Choking [Unknown]
  - Reflux laryngitis [Unknown]
  - Cough [Unknown]
  - Blood cholesterol increased [Unknown]
  - Dysphonia [Unknown]
  - Vomiting [Unknown]
  - Off label use [Unknown]
  - Drug dose omission [Unknown]
